FAERS Safety Report 6675617-4 (Version None)
Quarter: 2010Q2

REPORT INFORMATION
  Report Type: 
  Country: None (occurrence: None)
  Receive Date: 20100409
  Receipt Date: 20100329
  Transmission Date: 20101027
  Serious: Yes (Other)
  Sender: FDA-Public Use
  Company Number: IT-GENENTECH-299968

PATIENT
  Age: 62 Year

DRUGS (1)
  1. RITUXIMAB [Suspect]
     Indication: B-CELL LYMPHOMA
     Dosage: 375 MG/M2, UNK
     Route: 065
     Dates: start: 20000101

REACTIONS (7)
  - DIARRHOEA [None]
  - HAEMOLYSIS [None]
  - HERPES ZOSTER [None]
  - INFUSION RELATED REACTION [None]
  - NEUTROPENIA [None]
  - PNEUMONIA [None]
  - PYREXIA [None]
